FAERS Safety Report 5565278-X (Version None)
Quarter: 2007Q4

REPORT INFORMATION
  Report Type: 
  Country: None (occurrence: None)
  Receive Date: 20071218
  Receipt Date: 20011022
  Transmission Date: 20080405
  Serious: Yes (Death, Hospitalization)
  Sender: FDA-Public Use
  Company Number: CA-ROCHE-300162

PATIENT
  Age: 41 Year
  Sex: Male

DRUGS (1)
  1. SAQUINAVIR [Suspect]
     Indication: HIV INFECTION
     Route: 065
     Dates: start: 19960101, end: 19990101

REACTIONS (3)
  - LIPODYSTROPHY ACQUIRED [None]
  - PNEUMONIA [None]
  - RESPIRATORY FAILURE [None]
